FAERS Safety Report 11921917 (Version 1)
Quarter: 2016Q1

REPORT INFORMATION
  Report Type: Spontaneous
  Country: PL (occurrence: PL)
  Receive Date: 20160115
  Receipt Date: 20160115
  Transmission Date: 20160526
  Serious: Yes (Life-Threatening, Hospitalization)
  Sender: FDA-Public Use
  Company Number: PL-SA-2015SA051280

PATIENT
  Age: 58 Year
  Sex: Female

DRUGS (1)
  1. ARAVA [Suspect]
     Active Substance: LEFLUNOMIDE
     Indication: RHEUMATOID ARTHRITIS
     Route: 065
     Dates: start: 201201

REACTIONS (18)
  - Pain [Recovering/Resolving]
  - Leukocytosis [Recovered/Resolved]
  - Blister [Recovering/Resolving]
  - Soft tissue necrosis [Recovering/Resolving]
  - Skin lesion [Recovering/Resolving]
  - Cellulitis [Recovering/Resolving]
  - Chills [Recovering/Resolving]
  - Wound complication [Recovering/Resolving]
  - C-reactive protein increased [Recovered/Resolved]
  - Subcutaneous abscess [Recovering/Resolving]
  - Oedema [Recovering/Resolving]
  - Chills [Recovered/Resolved]
  - Staphylococcal infection [Recovering/Resolving]
  - Body temperature increased [Recovered/Resolved]
  - Red blood cell sedimentation rate increased [Recovered/Resolved]
  - Erythema [Recovering/Resolving]
  - Neutrophil count increased [Recovered/Resolved]
  - Escherichia infection [Recovering/Resolving]

NARRATIVE: CASE EVENT DATE: 201210
